FAERS Safety Report 6374407-X (Version None)
Quarter: 2009Q3

REPORT INFORMATION
  Report Type: 
  Country: None (occurrence: None)
  Receive Date: 20090921
  Receipt Date: 20090910
  Transmission Date: 20100115
  Serious: Yes (Other)
  Sender: FDA-Public Use
  Company Number: 09US003681

PATIENT
  Age: 3 Year
  Sex: Male

DRUGS (1)
  1. IBUPROFEN [Suspect]
     Indication: ACCIDENTAL DRUG INTAKE BY CHILD
     Dosage: 1800 MG, SINGLE, ORAL
     Route: 048
     Dates: start: 20090910, end: 20090910

REACTIONS (2)
  - ACCIDENTAL DRUG INTAKE BY CHILD [None]
  - ACCIDENTAL OVERDOSE [None]
